FAERS Safety Report 14423458 (Version 1)
Quarter: 2018Q1

REPORT INFORMATION
  Report Type: Spontaneous
  Country: ES (occurrence: ES)
  Receive Date: 20180123
  Receipt Date: 20180123
  Transmission Date: 20180509
  Serious: Yes (Hospitalization)
  Sender: FDA-Public Use
  Company Number: ES-TEVA-2018-ES-847342

PATIENT
  Age: 62 Year
  Sex: Female

DRUGS (3)
  1. FORTECORTIN [Concomitant]
     Active Substance: DEXAMETHASONE
     Dosage: 4 MG
     Route: 048
     Dates: start: 20170224, end: 20170225
  2. PACLITAXEL 288 MG (CICLO 1) [Suspect]
     Active Substance: PACLITAXEL
     Indication: ENDOMETRIAL ADENOCARCINOMA
     Dosage: PACLITAXEL 288 MG (CICLO 1)
     Route: 042
     Dates: start: 20170223, end: 20170223
  3. CARBOPLATINO 460 MG [Suspect]
     Active Substance: CARBOPLATIN
     Indication: ENDOMETRIAL ADENOCARCINOMA
     Dosage: 460 MG
     Route: 042
     Dates: start: 20170223, end: 20170223

REACTIONS (1)
  - Acute kidney injury [Recovered/Resolved]

NARRATIVE: CASE EVENT DATE: 20170227
